FAERS Safety Report 5741035-6 (Version None)
Quarter: 2008Q2

REPORT INFORMATION
  Report Type: 
  Country: None (occurrence: None)
  Receive Date: 20080516
  Receipt Date: 20080505
  Transmission Date: 20081010
  Serious: Yes (Other)
  Sender: FDA-Public Use
  Company Number: CN-PFIZER INC-2008038684

PATIENT

DRUGS (2)
  1. VFEND [Suspect]
     Indication: FUNGAL INFECTION
     Route: 048
  2. CYCLOSPORINE [Concomitant]

REACTIONS (1)
  - TETANY [None]
